FAERS Safety Report 10452159 (Version 1)
Quarter: 2014Q3

REPORT INFORMATION
  Report Type: Spontaneous
  Country: DE (occurrence: DE)
  Receive Date: 20140915
  Receipt Date: 20140915
  Transmission Date: 20150326
  Serious: Yes (Life-Threatening, Hospitalization)
  Sender: FDA-Public Use
  Company Number: DE-JNJFOC-20140909634

PATIENT
  Age: 51 Year
  Sex: Female

DRUGS (5)
  1. ASPIRIN. [Concomitant]
     Active Substance: ASPIRIN
     Route: 065
     Dates: start: 20140721
  2. FALITHROM [Concomitant]
     Active Substance: PHENPROCOUMON
     Route: 065
     Dates: start: 20140725
  3. REOPRO [Suspect]
     Active Substance: ABCIXIMAB
     Indication: MYOCARDIAL INFARCTION
     Route: 065
     Dates: start: 20140721
  4. PRASUGREL [Concomitant]
     Active Substance: PRASUGREL
     Route: 065
  5. REOPRO [Suspect]
     Active Substance: ABCIXIMAB
     Indication: STENT PLACEMENT
     Route: 065
     Dates: start: 20140721

REACTIONS (2)
  - Cerebral haemorrhage [Unknown]
  - Cardiac ventricular thrombosis [Recovered/Resolved]

NARRATIVE: CASE EVENT DATE: 20140723
